FAERS Safety Report 9396459 (Version 6)
Quarter: 2013Q4

REPORT INFORMATION
  Report Type: Spontaneous
  Country: US (occurrence: None)
  Receive Date: 20130708
  Receipt Date: 20131007
  Transmission Date: 20140711
  Serious: Yes (Hospitalization)
  Sender: FDA-Public Use
  Company Number: SYM-2013-05345

PATIENT
  Age: 59 Year
  Sex: Female

DRUGS (9)
  1. WELLBUTRIN [Suspect]
     Indication: PRODUCT USED FOR UNKNOWN INDICATION
     Dosage: 150MG, 2 IN 1 D, ORAL
     Route: 048
     Dates: start: 20130529, end: 20130602
  2. LORAZEPAM (LORAZEPAM) [Concomitant]
  3. SALBUTAMOL SULPHATE (SALBUTAMOL SULFATE) [Concomitant]
  4. TIOTROPIUM (TIOTROPIUM) [Concomitant]
  5. OMEPRAZOLE (OMEPRAZOLE) [Concomitant]
  6. TRAZODONE (TRAZODONE) [Concomitant]
  7. OXYCODONE + PARACETAMOL (OXYCODONE/APAP) (OXYCODONE, PARACETAMOL) [Concomitant]
  8. TIZANIDINE (TIZANIDINE) [Concomitant]
  9. INVESTIGATIONAL DRUG (OTHER THERAPEUTIC PRODUCTS) [Concomitant]

REACTIONS (5)
  - Asthenia [None]
  - Dizziness [None]
  - Palpitations [None]
  - Pain [None]
  - Supraventricular tachycardia [None]
